FAERS Safety Report 7082163-5 (Version None)
Quarter: 2010Q4

REPORT INFORMATION
  Report Type: 
  Country: None (occurrence: None)
  Receive Date: 20101103
  Receipt Date: 20101021
  Transmission Date: 20110411
  Serious: Yes (Other)
  Sender: FDA-Public Use
  Company Number: US-AMGEN INC.-QUU442862

PATIENT

DRUGS (5)
  1. NPLATE [Suspect]
     Indication: IDIOPATHIC THROMBOCYTOPENIC PURPURA
     Dosage: 2 A?G/KG, QWK
     Route: 058
     Dates: start: 20090814
  2. CORTICOSTEROID NOS [Concomitant]
     Dosage: UNK UNK, UNK
     Dates: start: 20090717, end: 20090727
  3. LORAZEPAM [Concomitant]
     Dosage: 0.5 MG, QD
     Route: 048
     Dates: start: 20090710
  4. ALPRAZOLAM [Concomitant]
     Dosage: 0.5 MG, QD
     Route: 048
     Dates: start: 20090710
  5. TRIAMTERENE AND HYDROCHLOROTHIAZIDE [Concomitant]
     Dosage: UNK UNK, QD
     Route: 048
     Dates: start: 20090710

REACTIONS (3)
  - BONE PAIN [None]
  - CONTUSION [None]
  - THROMBOCYTOPENIA [None]
